FAERS Safety Report 17500228 (Version 3)
Quarter: 2024Q3

REPORT INFORMATION
  Report Type: Report from Study
  Country: GB (occurrence: GB)
  Receive Date: 20200305
  Receipt Date: 20240729
  Transmission Date: 20241016
  Serious: Yes (Death, Hospitalization, Other)
  Sender: GLAXOSMITHKLINE
  Company Number: GB-GLAXOSMITHKLINE-GB2020EME035909

PATIENT

DRUGS (1)
  1. MEPOLIZUMAB [Suspect]
     Active Substance: MEPOLIZUMAB
     Indication: Asthma
     Dosage: 100 MG, Q4W
     Dates: start: 201910

REACTIONS (5)
  - Death [Fatal]
  - Transient ischaemic attack [Unknown]
  - Urinary tract infection [Unknown]
  - Asthma [Unknown]
  - Device related infection [Unknown]

NARRATIVE: CASE EVENT DATE: 20240701
